FAERS Safety Report 14063194 (Version 1)
Quarter: 2017Q4

REPORT INFORMATION
  Report Type: Spontaneous
  Country: US (occurrence: US)
  Receive Date: 20171009
  Receipt Date: 20171009
  Transmission Date: 20180321
  Serious: No
  Sender: FDA-Public Use
  Company Number: US-ASTRAZENECA-2017SF00698

PATIENT

DRUGS (19)
  1. PERCOCET [Concomitant]
     Active Substance: ACETAMINOPHEN\OXYCODONE HYDROCHLORIDE
     Dosage: 10-325 MG 1 TABLET AS NEEDED ORALLY EVERY 6 HRS
     Route: 048
  2. FENOFIBRATE. [Concomitant]
     Active Substance: FENOFIBRATE
     Route: 048
  3. PREVACID [Concomitant]
     Active Substance: LANSOPRAZOLE
     Route: 048
  4. LINZESS [Concomitant]
     Active Substance: LINACLOTIDE
     Route: 048
  5. BIOTIN [Concomitant]
     Active Substance: BIOTIN
     Route: 048
  6. TUDORZA PRESSAIR [Suspect]
     Active Substance: ACLIDINIUM BROMIDE
     Route: 055
  7. NICOTROL [Suspect]
     Active Substance: NICOTINE
     Dosage: 10 MG/ML SOLUTION, 1 ML AS NEEDED 40 TIMES A DAY NASALLY
     Route: 045
  8. XOPENEX [Concomitant]
     Active Substance: LEVALBUTEROL HYDROCHLORIDE
     Dosage: 1.25 MG/3 ML 3 ML INHALATION THREE TIMES A DAY
  9. PROAIR RESPICHECK [Concomitant]
     Dosage: INHALATION POWDER: 2 INHALATIONS EVERY 4 TO 6 HOURS
  10. ASPIRIN. [Concomitant]
     Active Substance: ASPIRIN
     Route: 048
  11. GLUCOPHAGE [Concomitant]
     Active Substance: METFORMIN HYDROCHLORIDE
     Route: 048
  12. TRIAMCINOLONE ACETONIDE. [Concomitant]
     Active Substance: TRIAMCINOLONE ACETONIDE
     Dosage: 55 MCG/ACT 1 PUFF IN EACH NOSTRIL NASALLY ONCE A DAY
  13. FLOVENT HFA [Concomitant]
     Active Substance: FLUTICASONE PROPIONATE
     Dosage: 220 MCG/ACT 1 PUFF INHALTION THWICE A DAY
  14. ANORO ELLIPTA [Concomitant]
     Active Substance: UMECLIDINIUM BROMIDE\VILANTEROL TRIFENATATE
     Dosage: 62.5 MCG/25 MCG AS DIRECTED ORALLY 12 HOURS A DAY
  15. MONTELUKAST SODIUM. [Concomitant]
     Active Substance: MONTELUKAST SODIUM
     Route: 048
  16. MUCINEX [Concomitant]
     Active Substance: GUAIFENESIN
     Dosage: 1 TABLET AS NEEDED ORALLY EVERY 12 HRS
     Route: 048
  17. TRAZODONE HYDROCHLORIDE. [Concomitant]
     Active Substance: TRAZODONE HYDROCHLORIDE
     Route: 048
  18. DALIRESP [Concomitant]
     Active Substance: ROFLUMILAST
     Route: 048
  19. PROZAC [Concomitant]
     Active Substance: FLUOXETINE HYDROCHLORIDE
     Dosage: 2.0DF UNKNOWN
     Route: 048

REACTIONS (23)
  - Depression [Unknown]
  - Type 2 diabetes mellitus [Unknown]
  - Neck pain [Unknown]
  - Asthma [Unknown]
  - Ear pain [Unknown]
  - Drug hypersensitivity [Unknown]
  - Gastrooesophageal reflux disease [Unknown]
  - Chronic obstructive pulmonary disease [Unknown]
  - Hyperlipidaemia [Unknown]
  - Back pain [Unknown]
  - Dyspnoea [Unknown]
  - Pseudomonas infection [Unknown]
  - Renal cyst [Unknown]
  - Abdominal pain [Unknown]
  - Cough [Unknown]
  - Restless legs syndrome [Unknown]
  - Dizziness [Unknown]
  - Haematuria [Unknown]
  - Vocal cord leukoplakia [Unknown]
  - Bacterial infection [Unknown]
  - Wheezing [Unknown]
  - Anxiety [Unknown]
  - Dyspepsia [Unknown]
